FAERS Safety Report 6144591-1 (Version None)
Quarter: 2009Q2

REPORT INFORMATION
  Report Type: 
  Country: None (occurrence: None)
  Receive Date: 20090401
  Receipt Date: 20090316
  Transmission Date: 20091009
  Serious: Yes (Hospitalization)
  Sender: FDA-Public Use
  Company Number: 8044232

PATIENT
  Sex: Female

DRUGS (1)
  1. CORACTEN [Suspect]
     Indication: ANGINA PECTORIS

REACTIONS (1)
  - CEREBROVASCULAR ACCIDENT [None]
